FAERS Safety Report 20960523 (Version 1)
Quarter: 2022Q2

REPORT INFORMATION
  Report Type: Spontaneous
  Country: CA (occurrence: CA)
  Receive Date: 20220615
  Receipt Date: 20220615
  Transmission Date: 20220721
  Serious: Yes (Hospitalization)
  Sender: FDA-Public Use
  Company Number: CA-CHEPLA-2022004792

PATIENT
  Age: 75 Year
  Sex: Female
  Weight: 73 kg

DRUGS (7)
  1. CLONAZEPAM [Suspect]
     Active Substance: CLONAZEPAM
     Indication: Product used for unknown indication
     Dosage: DAILY DOSE: 0.5 MILLIGRAM
     Route: 048
  2. DITROPAN [Suspect]
     Active Substance: OXYBUTYNIN CHLORIDE
     Dosage: 3 EVERY 1 DAYS??DAILY DOSE: 5 MILLIGRAM
     Route: 048
  3. NEURONTIN [Suspect]
     Active Substance: GABAPENTIN
     Indication: Product used for unknown indication
     Dosage: 3 EVERY 1 DAYS??DAILY DOSE: 400 MILLIGRAM
     Route: 048
  4. LEVOMEPROMAZINE [Suspect]
     Active Substance: LEVOMEPROMAZINE
     Indication: Product used for unknown indication
     Dosage: 1 EVERY 1 DAYS??DAILY DOSE: 25 MILLIGRAM
     Route: 048
  5. BUPROPION [Concomitant]
     Active Substance: BUPROPION
     Route: 065
  6. ESCITALOPRAM [Concomitant]
     Active Substance: ESCITALOPRAM OXALATE
     Route: 065
  7. MEVACOR [Concomitant]
     Active Substance: LOVASTATIN
     Route: 065

REACTIONS (8)
  - Blood creatine phosphokinase increased [Unknown]
  - Blood creatinine increased [Unknown]
  - Blood urea increased [Unknown]
  - Dehydration [Unknown]
  - Delirium [Unknown]
  - Fall [Unknown]
  - Haemoglobin decreased [Unknown]
  - Muscular weakness [Unknown]
